FAERS Safety Report 24206672 (Version 1)
Quarter: 2024Q3

REPORT INFORMATION
  Report Type: Spontaneous
  Country: BG (occurrence: BG)
  Receive Date: 20240813
  Receipt Date: 20240813
  Transmission Date: 20241017
  Serious: No
  Sender: JAZZ
  Company Number: BG-JAZZ PHARMACEUTICALS-2023-BG-023762

PATIENT
  Age: 69 Year
  Sex: Female

DRUGS (3)
  1. VYXEOS [Suspect]
     Active Substance: CYTARABINE\DAUNORUBICIN
     Indication: Acute myeloid leukaemia
     Dosage: DAUNORUBICIN 44MG/M2 AND CYTARABINE 100 MG/M2
     Route: 042
     Dates: start: 20231113
  2. PIPERACILLIN [Concomitant]
     Active Substance: PIPERACILLIN
  3. TAZOBACTAM [Concomitant]
     Active Substance: TAZOBACTAM

REACTIONS (2)
  - Monocyte count decreased [Not Recovered/Not Resolved]
  - Platelet count decreased [Recovering/Resolving]

NARRATIVE: CASE EVENT DATE: 20231120
